FAERS Safety Report 6845146-3 (Version None)
Quarter: 2010Q3

REPORT INFORMATION
  Report Type: 
  Country: None (occurrence: None)
  Receive Date: 20100715
  Receipt Date: 20070810
  Transmission Date: 20110219
  Serious: No
  Sender: FDA-Public Use
  Company Number: US-PFIZER INC-2007069726

PATIENT
  Sex: Female
  Weight: 84.8 kg

DRUGS (2)
  1. CHANTIX [Suspect]
     Indication: SMOKING CESSATION THERAPY
     Dates: start: 20070728
  2. NIACIN [Interacting]
     Indication: BLOOD CHOLESTEROL INCREASED
     Dates: start: 20070724

REACTIONS (5)
  - ABDOMINAL PAIN UPPER [None]
  - ABSTAINS FROM ALCOHOL [None]
  - CONSTIPATION [None]
  - DECREASED APPETITE [None]
  - DRUG INTERACTION [None]
